FAERS Safety Report 15633452 (Version 1)
Quarter: 2018Q4

REPORT INFORMATION
  Report Type: Spontaneous
  Country: US (occurrence: US)
  Receive Date: 20181119
  Receipt Date: 20181119
  Transmission Date: 20190205
  Serious: Yes (Other)
  Sender: FDA-Public Use
  Company Number: US-SA-2018SA005968

PATIENT
  Age: 61 Year
  Sex: Female
  Weight: 90.26 kg

DRUGS (13)
  1. TAXOTERE [Suspect]
     Active Substance: DOCETAXEL
     Indication: BREAST CANCER
     Dosage: UNK, Q3W
     Route: 042
     Dates: start: 20100309, end: 20100309
  2. METPROLOL [Concomitant]
     Active Substance: METOPROLOL
     Dosage: UNK
     Dates: start: 199904
  3. POTASSIUM [Concomitant]
     Active Substance: POTASSIUM
  4. METHIMAZOLE. [Concomitant]
     Active Substance: METHIMAZOLE
  5. CARBOPLATIN. [Concomitant]
     Active Substance: CARBOPLATIN
  6. NEXIUM [ESOMEPRAZOLE SODIUM] [Concomitant]
  7. TAXOTERE [Suspect]
     Active Substance: DOCETAXEL
     Dosage: UNK, Q3W
     Route: 042
     Dates: start: 20100623, end: 20100623
  8. FUROSEMIDE. [Concomitant]
     Active Substance: FUROSEMIDE
     Dosage: UNK
  9. CALCIUM [Concomitant]
     Active Substance: CALCIUM
  10. TRIAMTERENE. [Concomitant]
     Active Substance: TRIAMTERENE
     Dosage: UNK
  11. FLECAINIDE [Concomitant]
     Active Substance: FLECAINIDE
  12. TYLENOL PM [Concomitant]
     Active Substance: ACETAMINOPHEN\DIPHENHYDRAMINE
     Dosage: UNK
     Dates: start: 2003
  13. XARELTO [Concomitant]
     Active Substance: RIVAROXABAN

REACTIONS (1)
  - Alopecia [Not Recovered/Not Resolved]

NARRATIVE: CASE EVENT DATE: 201003
